FAERS Safety Report 15555538 (Version 1)
Quarter: 2018Q4

REPORT INFORMATION
  Report Type: Spontaneous
  Country: US (occurrence: US)
  Receive Date: 20181022
  Receipt Date: 20181022
  Transmission Date: 20190205
  Serious: Yes (Hospitalization)
  Sender: FDA-Public Use
  Company Number: None

PATIENT
  Age: 76 Year
  Sex: Male
  Weight: 55.1 kg

DRUGS (1)
  1. EMEND [Suspect]
     Active Substance: APREPITANT
     Indication: LARYNGEAL CANCER
     Route: 042
     Dates: start: 20181010

REACTIONS (5)
  - Dyspnoea [None]
  - Wheezing [None]
  - Chest discomfort [None]
  - Oxygen saturation decreased [None]
  - Unevaluable event [None]

NARRATIVE: CASE EVENT DATE: 20181010
